FAERS Safety Report 14819459 (Version 1)
Quarter: 2018Q2

REPORT INFORMATION
  Report Type: Spontaneous
  Country: NL (occurrence: NL)
  Receive Date: 20180427
  Receipt Date: 20180427
  Transmission Date: 20180711
  Serious: Yes (Other)
  Sender: FDA-Public Use
  Company Number: NL-ACCORD-065458

PATIENT
  Sex: Female

DRUGS (1)
  1. LISINOPRIL ACCORD [Suspect]
     Active Substance: LISINOPRIL
     Indication: PRODUCT USED FOR UNKNOWN INDICATION
     Dosage: STRENGTH: 10 MG?START DATE: 08-MAR

REACTIONS (5)
  - Pyrexia [Unknown]
  - Eye disorder [Unknown]
  - Dyspnoea [Unknown]
  - Swelling face [Unknown]
  - Hypersensitivity [Unknown]
